FAERS Safety Report 5733880-8 (Version None)
Quarter: 2008Q2

REPORT INFORMATION
  Report Type: 
  Country: None (occurrence: None)
  Receive Date: 20080509
  Receipt Date: 20080501
  Transmission Date: 20081010
  Serious: Yes (Other)
  Sender: FDA-Public Use
  Company Number: US-ELI_LILLY_AND_COMPANY-US200804001846

PATIENT
  Sex: Male

DRUGS (11)
  1. HUMALOG [Suspect]
     Indication: DIABETES MELLITUS
     Dosage: UNK, BEFORE BREAKFAST
     Dates: start: 20070401
  2. HUMALOG [Suspect]
     Dosage: UNK, BEFORE LUNCH
     Dates: start: 20071001
  3. HUMALOG [Suspect]
     Dosage: 13 U, UNK
     Dates: start: 20080131, end: 20080131
  4. HUMALOG [Suspect]
     Dosage: UNK, BEFORE DINNER
     Dates: start: 20080201
  5. HUMULIN N [Suspect]
     Indication: DIABETES MELLITUS
     Dosage: UNK, UNK
     Dates: start: 20060101, end: 20061013
  6. BYETTA [Concomitant]
     Indication: DIABETES MELLITUS
     Dosage: 5 UG, UNK
     Dates: start: 20061013
  7. BYETTA [Concomitant]
     Dosage: 10 UG, UNK
  8. LANTUS [Concomitant]
     Indication: DIABETES MELLITUS
  9. COREG [Concomitant]
  10. AMARYL [Concomitant]
     Dosage: 4 MG, UNK
  11. AMARYL [Concomitant]
     Dosage: 2 MG, UNK
     Dates: start: 20080201

REACTIONS (9)
  - ABDOMINAL PAIN UPPER [None]
  - AMNESIA [None]
  - BLOOD GLUCOSE DECREASED [None]
  - BLOOD GLUCOSE INCREASED [None]
  - BLOOD PRESSURE INCREASED [None]
  - DISORIENTATION [None]
  - DYSARTHRIA [None]
  - GASTRIC DISORDER [None]
  - ROAD TRAFFIC ACCIDENT [None]
